FAERS Safety Report 9890610 (Version 1)
Quarter: 2014Q1

REPORT INFORMATION
  Report Type: Spontaneous
  Country: US (occurrence: None)
  Receive Date: 20140211
  Receipt Date: 20140211
  Transmission Date: 20141002
  Serious: No
  Sender: FDA-Public Use
  Company Number: None

PATIENT
  Age: 54 Year
  Sex: Female

DRUGS (4)
  1. LISINOPRIL/HCTZ [Suspect]
  2. NEXIUM [Concomitant]
  3. ZOCOR [Concomitant]
  4. METFORMIN [Concomitant]

REACTIONS (1)
  - Rash [None]
